FAERS Safety Report 25366209 (Version 2)
Quarter: 2025Q4

REPORT INFORMATION
  Report Type: Report from Study
  Country: US (occurrence: US)
  Receive Date: 20250528
  Receipt Date: 20251229
  Transmission Date: 20260117
  Serious: Yes (Other)
  Sender: JOHNSON AND JOHNSON
  Company Number: US-JNJFOC-20250530718

PATIENT
  Age: 71 Year
  Sex: Male

DRUGS (1)
  1. CARVYKTI [Suspect]
     Active Substance: CILTACABTAGENE AUTOLEUCEL
     Indication: Plasma cell myeloma
     Dosage: VOL:1, NO: OF LINES OF PRIOR THERAPIES (INCLUDING CT AND HCT): 8
     Route: 042

REACTIONS (1)
  - Squamous cell carcinoma of skin [Unknown]
